FAERS Safety Report 4953414-5 (Version None)
Quarter: 2006Q1

REPORT INFORMATION
  Report Type: 
  Country: None (occurrence: None)
  Receive Date: 20060324
  Receipt Date: 20060317
  Transmission Date: 20060701
  Serious: Yes (Other)
  Sender: FDA-Public Use
  Company Number: PHEH2006US03623

PATIENT
  Age: 41 Year
  Sex: Male

DRUGS (7)
  1. CLOZARIL [Suspect]
     Indication: SCHIZOPHRENIA
     Dosage: 600 MG, UNK
     Route: 048
  2. NIASPAN [Concomitant]
  3. ASPIRIN [Concomitant]
  4. LISINOPRIL [Concomitant]
  5. PROTONIX [Concomitant]
  6. LOPID [Concomitant]
  7. WELCHOL [Concomitant]

REACTIONS (3)
  - LEUKOPENIA [None]
  - ORCHIDECTOMY [None]
  - TESTIS CANCER [None]
